FAERS Safety Report 15988820 (Version 2)
Quarter: 2019Q1

REPORT INFORMATION
  Report Type: Spontaneous
  Country: RU (occurrence: RU)
  Receive Date: 20190221
  Receipt Date: 20190322
  Transmission Date: 20190418
  Serious: Yes (Death, Hospitalization, Other)
  Sender: FDA-Public Use
  Company Number: RU-ASTELLAS-2019US006111

PATIENT
  Age: 34 Year
  Sex: Male

DRUGS (3)
  1. METOCLOPRAMIDE. [Suspect]
     Active Substance: METOCLOPRAMIDE
     Indication: GASTROINTESTINAL HYPOMOTILITY
     Dosage: UNK UNK, UNKNOWN FREQ.
     Route: 065
     Dates: start: 2016, end: 2016
  2. TACROLIMUS. [Suspect]
     Active Substance: TACROLIMUS
     Indication: BONE MARROW TRANSPLANT
     Dosage: 0.05 MG/KG, UNKNOWN FREQ.
     Route: 065
     Dates: start: 20161018
  3. METHYLPREDNISOLONE. [Concomitant]
     Active Substance: METHYLPREDNISOLONE
     Indication: BONE MARROW TRANSPLANT
     Route: 065
     Dates: start: 20160926

REACTIONS (15)
  - Pylorospasm [Unknown]
  - Cytopenia [Unknown]
  - Gastritis [Unknown]
  - Septic shock [Unknown]
  - Pseudomonas infection [Unknown]
  - Infection [Unknown]
  - Gastric atony [Unknown]
  - Graft versus host disease in gastrointestinal tract [Unknown]
  - Erosive oesophagitis [Unknown]
  - Respiratory failure [Recovered/Resolved]
  - Erosive duodenitis [Unknown]
  - Gastrointestinal haemorrhage [Unknown]
  - Impaired gastric emptying [Recovered/Resolved]
  - Multiple organ dysfunction syndrome [Fatal]
  - Product use in unapproved indication [Unknown]

NARRATIVE: CASE EVENT DATE: 2016
